FAERS Safety Report 11249272 (Version 1)
Quarter: 2015Q3

REPORT INFORMATION
  Report Type: Spontaneous
  Country: US (occurrence: US)
  Receive Date: 20150708
  Receipt Date: 20150708
  Transmission Date: 20151125
  Serious: Yes (Other)
  Sender: FDA-Public Use
  Company Number: US-ELI_LILLY_AND_COMPANY-US200910003698

PATIENT
  Age: 71 Year
  Sex: Female
  Weight: 105.67 kg

DRUGS (13)
  1. VITAMIN B12 [Concomitant]
     Active Substance: CYANOCOBALAMIN
     Dosage: UNK, MONTHLY (1/M)
     Route: 030
  2. DEXAMETHASONE. [Concomitant]
     Active Substance: DEXAMETHASONE
     Dosage: 4 MG, DAY BEFORE, DAY OF, AND 2 DAYS FOLLOWING CHEMOTHERAPY
  3. VITAMIN C [Concomitant]
     Active Substance: ASCORBIC ACID
     Dosage: 1000 MG, DAILY (1/D)
  4. ALIMTA [Suspect]
     Active Substance: PEMETREXED DISODIUM
     Dates: start: 200812
  5. FOLIC ACID. [Concomitant]
     Active Substance: FOLIC ACID
     Dosage: 1 MG, DAILY (1/D)
  6. MAGNESIUM [Concomitant]
     Active Substance: MAGNESIUM
     Dosage: 250 MG, DAILY (1/D)
  7. ALIMTA [Suspect]
     Active Substance: PEMETREXED DISODIUM
     Indication: NON-SMALL CELL LUNG CANCER STAGE IV
     Dosage: 1 DOSE EVERY 3 WEEKS
     Dates: start: 20071115, end: 20080522
  8. LISINOPRIL. [Concomitant]
     Active Substance: LISINOPRIL
     Dosage: 1 D/F, DAILY (1/D)
  9. VITAMIN D3 [Concomitant]
     Active Substance: CHOLECALCIFEROL
     Dosage: 1000 U, 2/D
  10. OMEGA 3 FISH OIL [Concomitant]
     Active Substance: FISH OIL\OMEGA-3 FATTY ACIDS
     Dosage: 1000 MG, DAILY (1/D)
  11. CENTRUM SILVER [Concomitant]
     Active Substance: VITAMINS
  12. GLIPIZIDE XL [Concomitant]
     Active Substance: GLIPIZIDE
     Dosage: 5 MG, 2/D
     Route: 048
  13. METFORMIN [Concomitant]
     Active Substance: METFORMIN HYDROCHLORIDE
     Dosage: 1000 MG, 2/D

REACTIONS (16)
  - Cellulitis [Unknown]
  - Rash [Recovered/Resolved with Sequelae]
  - Oedema peripheral [Not Recovered/Not Resolved]
  - Skin atrophy [Recovered/Resolved with Sequelae]
  - Adverse drug reaction [Unknown]
  - Neoplasm [Unknown]
  - Erythema [Recovered/Resolved with Sequelae]
  - Skin discolouration [Not Recovered/Not Resolved]
  - Incontinence [Unknown]
  - Disease complication [Unknown]
  - Fungal skin infection [Not Recovered/Not Resolved]
  - Skin burning sensation [Recovered/Resolved with Sequelae]
  - Nasopharyngitis [Not Recovered/Not Resolved]
  - Headache [Not Recovered/Not Resolved]
  - Skin disorder [Not Recovered/Not Resolved]
  - Fatigue [Not Recovered/Not Resolved]

NARRATIVE: CASE EVENT DATE: 2008
